FAERS Safety Report 5259203-9 (Version None)
Quarter: 2007Q1

REPORT INFORMATION
  Report Type: 
  Country: None (occurrence: None)
  Receive Date: 20070305
  Receipt Date: 20070223
  Transmission Date: 20070707
  Serious: Yes (Other)
  Sender: FDA-Public Use
  Company Number: 237190

PATIENT

DRUGS (7)
  1. XOLAIR [Suspect]
     Indication: DRUG USE FOR UNKNOWN INDICATION
     Dosage: 375 MG, Q2W
  2. ADVAIR (FLUTICASONE PROPIONTE, SALMETEROL XINAFOATE) [Concomitant]
  3. SPIRIVIA (TIOTROPIUM BROMIDE) [Concomitant]
  4. NASONEX [Concomitant]
  5. ASTELIN [Concomitant]
  6. ATROVENT [Concomitant]
  7. ALBUTEROL (ALBUTEROL/ALBUTEROL SULFATE) [Concomitant]

REACTIONS (1)
  - PHARYNGEAL OEDEMA [None]
